FAERS Safety Report 23775731 (Version 5)
Quarter: 2024Q2

REPORT INFORMATION
  Report Type: Report from Study
  Country: CH (occurrence: CH)
  Receive Date: 20240423
  Receipt Date: 20240607
  Transmission Date: 20240716
  Serious: Yes (Other)
  Sender: FDA-Public Use
  Company Number: CH-ABBVIE-5730404

PATIENT
  Age: 68 Year
  Sex: Female

DRUGS (6)
  1. CARBIDOPA\LEVODOPA [Suspect]
     Active Substance: CARBIDOPA\LEVODOPA
     Indication: Parkinson^s disease
     Dosage: MD: 3.0 ML, CRD: 2.6 ML/H, ED: 1.5 ML, CRN: 1.8 ML/H?24H THERAPY
     Route: 050
     Dates: start: 20240311, end: 20240408
  2. CARBIDOPA\LEVODOPA [Suspect]
     Active Substance: CARBIDOPA\LEVODOPA
     Dosage: LAST ADMIN DATE: 2023?24H THERAPY
     Route: 050
     Dates: start: 20230919
  3. CARBIDOPA\LEVODOPA [Suspect]
     Active Substance: CARBIDOPA\LEVODOPA
     Dosage: MD: 3.0 ML, CRD: 2.6 ML/H, AD: 2.7 ML, ED: 1.5 ML, CRN: 1.8 ML/H?LAST ADMIN DATE: APR 2024?24H TH...
     Route: 050
     Dates: start: 20240408
  4. CARBIDOPA\LEVODOPA [Suspect]
     Active Substance: CARBIDOPA\LEVODOPA
     Dosage: MD: 3.0 ML, CRD: 2.6 ML/H, ED: 1.0 ML, CRN: 1.7 ML/H?24H THERAPY
     Route: 050
     Dates: start: 20231218, end: 20240311
  5. CARBIDOPA\LEVODOPA [Suspect]
     Active Substance: CARBIDOPA\LEVODOPA
     Dosage: MD: 3.0 ML, CRD: 2.6 ML/H, AD: 2.8 ML, ED: 1.5 ML, CRN: 1.8 ML/H?24H THERAPY
     Route: 050
     Dates: start: 20240423, end: 20240429
  6. CARBIDOPA\LEVODOPA [Suspect]
     Active Substance: CARBIDOPA\LEVODOPA
     Dosage: MD: 3.0 ML, CRD: 2.7 ML/H, AD: 2.8 ML, ED: 1.5 ML, CRN: 1.8 ML/H?FREQUENCY TEXT: 24H THERAPY
     Route: 050
     Dates: start: 20240429

REACTIONS (9)
  - Suicidal ideation [Not Recovered/Not Resolved]
  - Malaise [Not Recovered/Not Resolved]
  - Gait inability [Not Recovered/Not Resolved]
  - Asthenia [Not Recovered/Not Resolved]
  - Limb discomfort [Not Recovered/Not Resolved]
  - Agitation [Unknown]
  - Wrong technique in device usage process [Recovered/Resolved]
  - Device leakage [Recovered/Resolved]
  - Therapeutic product effect incomplete [Unknown]

NARRATIVE: CASE EVENT DATE: 20240401
